FAERS Safety Report 19565258 (Version 1)
Quarter: 2021Q3

REPORT INFORMATION
  Report Type: Spontaneous
  Country: CA (occurrence: CA)
  Receive Date: 20210714
  Receipt Date: 20210714
  Transmission Date: 20211014
  Serious: Yes (Hospitalization, Other)
  Sender: FDA-Public Use
  Company Number: CA-VALIDUS PHARMACEUTICALS LLC-CA-VDP-2021-000020

PATIENT
  Age: 89 Year
  Sex: Male
  Weight: 68 kg

DRUGS (4)
  1. FUROSEMIDE. [Suspect]
     Active Substance: FUROSEMIDE
     Dosage: 60 MILLIGRAM, Q12H
     Route: 048
  2. METOLAZONE. [Suspect]
     Active Substance: METOLAZONE
     Dosage: 2.5 MILLIGRAM, QD
     Route: 048
  3. FUROSEMIDE. [Suspect]
     Active Substance: FUROSEMIDE
     Dosage: 40 MILLIGRAM, Q12H
     Route: 048
  4. METOLAZONE. [Suspect]
     Active Substance: METOLAZONE
     Dosage: 2.5 MILLIGRAM, QWK
     Route: 048

REACTIONS (4)
  - Therapy change [Unknown]
  - Confusional state [Unknown]
  - Hyponatraemia [Unknown]
  - Hypokalaemia [Unknown]
